FAERS Safety Report 15726834 (Version 2)
Quarter: 2018Q4

REPORT INFORMATION
  Report Type: Spontaneous
  Country: US (occurrence: US)
  Receive Date: 20181217
  Receipt Date: 20181229
  Transmission Date: 20190205
  Serious: No
  Sender: FDA-Public Use
  Company Number: US-CELGENEUS-USA-20181203207

PATIENT
  Age: 74 Year
  Sex: Female

DRUGS (6)
  1. THALOMID [Suspect]
     Active Substance: THALIDOMIDE
     Indication: OFF LABEL USE
  2. MTX [Concomitant]
     Active Substance: METHOTREXATE SODIUM
     Indication: PSORIASIS
     Route: 048
     Dates: start: 201112
  3. CYMBALTA [Concomitant]
     Active Substance: DULOXETINE HYDROCHLORIDE
     Indication: PRODUCT USED FOR UNKNOWN INDICATION
     Route: 065
  4. FOLIC ACID. [Concomitant]
     Active Substance: FOLIC ACID
     Indication: PSORIASIS
     Route: 065
     Dates: start: 201112
  5. THALOMID [Suspect]
     Active Substance: THALIDOMIDE
     Indication: ERYTHEMA NODOSUM
     Dosage: 100 MILLIGRAM
     Route: 048
     Dates: start: 20180809, end: 20181129
  6. ELAVIL [Concomitant]
     Active Substance: AMITRIPTYLINE HYDROCHLORIDE
     Indication: PRODUCT USED FOR UNKNOWN INDICATION
     Route: 065

REACTIONS (1)
  - Lymphoedema [Recovered/Resolved]

NARRATIVE: CASE EVENT DATE: 201809
